FAERS Safety Report 9931090 (Version 1)
Quarter: 2014Q1

REPORT INFORMATION
  Report Type: Report from Study
  Country: NL (occurrence: NL)
  Receive Date: 20140227
  Receipt Date: 20140227
  Transmission Date: 20141002
  Serious: Yes (Hospitalization)
  Sender: FDA-Public Use
  Company Number: PHHY2014NL023389

PATIENT
  Age: 76 Year
  Sex: Male

DRUGS (6)
  1. ZOMETA [Suspect]
     Indication: PROSTATE CANCER METASTATIC
     Dosage: 4 MG PER 100 ML 1 X PER 6 WEEKS
     Route: 042
  2. ZOMETA [Suspect]
     Dosage: 4 MG PER 100 ML 1 X PER 6 WEEKS
     Route: 042
     Dates: start: 20100402
  3. ZOMETA [Suspect]
     Dosage: 4 MG PER 100 ML 1 X PER 6 WEEKS
     Route: 042
     Dates: start: 20140113
  4. ZOMETA [Suspect]
     Dosage: 4 MG PER 100 ML 1 X PER 6 WEEKS
     Route: 042
     Dates: start: 20140224
  5. HALDOL [Concomitant]
     Dosage: 2 MG, 5 DROPS
  6. MITRAZIN [Concomitant]
     Dosage: 15 MG, 0.5

REACTIONS (4)
  - Transient ischaemic attack [Recovering/Resolving]
  - Fall [Recovered/Resolved]
  - Wrist fracture [Recovering/Resolving]
  - Delirium [Recovering/Resolving]
